FAERS Safety Report 24915664 (Version 2)
Quarter: 2025Q3

REPORT INFORMATION
  Report Type: Spontaneous
  Country: EU (occurrence: EU)
  Receive Date: 20250203
  Receipt Date: 20250803
  Transmission Date: 20251020
  Serious: Yes (Death, Other)
  Sender: ALEXION PHARMACEUTICALS
  Company Number: None

PATIENT
  Age: 66 Year
  Sex: Male
  Weight: 96 kg

DRUGS (1)
  1. DAPAGLIFLOZIN [Suspect]
     Active Substance: DAPAGLIFLOZIN
     Indication: Myocardial infarction
     Dosage: 10 MILLIGRAM, QD
     Dates: end: 20240607

REACTIONS (1)
  - Necrotising fasciitis [Fatal]

NARRATIVE: CASE EVENT DATE: 20240607
